FAERS Safety Report 6170206-2 (Version None)
Quarter: 2009Q2

REPORT INFORMATION
  Report Type: 
  Country: None (occurrence: None)
  Receive Date: 20090428
  Receipt Date: 20090420
  Transmission Date: 20091009
  Serious: Yes (Other)
  Sender: FDA-Public Use
  Company Number: PHEH2008US04553

PATIENT
  Sex: Male

DRUGS (2)
  1. AREDIA [Suspect]
     Dosage: 90MG
     Dates: start: 20040901
  2. ZOMETA [Suspect]
     Dosage: 4MG
     Dates: start: 20050501

REACTIONS (6)
  - ANHEDONIA [None]
  - ANXIETY [None]
  - INJURY [None]
  - OSTEONECROSIS [None]
  - PAIN [None]
  - PHYSICAL DISABILITY [None]
